FAERS Safety Report 18962635 (Version 1)
Quarter: 2021Q1

REPORT INFORMATION
  Report Type: Spontaneous
  Country: HR (occurrence: HR)
  Receive Date: 20210303
  Receipt Date: 20210303
  Transmission Date: 20210420
  Serious: Yes (Other)
  Sender: FDA-Public Use
  Company Number: HR-GLAXOSMITHKLINE-HR2021056262

PATIENT
  Age: 25 Year
  Sex: Male

DRUGS (1)
  1. WELLBUTRIN [Suspect]
     Active Substance: BUPROPION HYDROCHLORIDE
     Indication: PRODUCT USED FOR UNKNOWN INDICATION
     Dosage: 1200 MG, QD
     Route: 042
     Dates: start: 202101, end: 202101

REACTIONS (3)
  - Overdose [Unknown]
  - Incorrect route of product administration [Unknown]
  - Cellulitis [Unknown]

NARRATIVE: CASE EVENT DATE: 202101
